FAERS Safety Report 14061807 (Version 1)
Quarter: 2017Q4

REPORT INFORMATION
  Report Type: Spontaneous
  Country: FR (occurrence: FR)
  Receive Date: 20171009
  Receipt Date: 20171009
  Transmission Date: 20180321
  Serious: Yes (Other)
  Sender: FDA-Public Use
  Company Number: FR-MERCK KGAA-2029304

PATIENT
  Age: 68 Year
  Sex: Female

DRUGS (2)
  1. PENTOXIFYLLINE. [Concomitant]
     Active Substance: PENTOXIFYLLINE
  2. NOVOTHYROX [Suspect]
     Active Substance: LEVOTHYROXINE SODIUM
     Indication: PRODUCT USED FOR UNKNOWN INDICATION
     Dates: start: 2017

REACTIONS (5)
  - Blood thyroid stimulating hormone increased [None]
  - Diarrhoea [None]
  - Flatulence [None]
  - Haematochezia [None]
  - Weight decreased [None]

NARRATIVE: CASE EVENT DATE: 2017
